FAERS Safety Report 7999402-6 (Version None)
Quarter: 2011Q4

REPORT INFORMATION
  Report Type: 
  Country: None (occurrence: None)
  Receive Date: 20111221
  Receipt Date: 20111208
  Transmission Date: 20120403
  Serious: Yes (Hospitalization)
  Sender: FDA-Public Use
  Company Number: AU-ELI_LILLY_AND_COMPANY-AU201112002297

PATIENT
  Sex: Female

DRUGS (5)
  1. INSULIN [Concomitant]
  2. LEVOTHYROXINE SODIUM [Concomitant]
  3. EFFEXOR [Concomitant]
  4. METFORMIN HCL [Concomitant]
  5. BYETTA [Suspect]
     Indication: TYPE 2 DIABETES MELLITUS
     Dosage: 5 UG, BID
     Dates: start: 20111107

REACTIONS (1)
  - KETOACIDOSIS [None]
